FAERS Safety Report 20752000 (Version 3)
Quarter: 2022Q3

REPORT INFORMATION
  Report Type: Report from Study
  Country: CA (occurrence: CA)
  Receive Date: 20220426
  Receipt Date: 20220719
  Transmission Date: 20221026
  Serious: Yes (Other)
  Sender: FDA-Public Use
  Company Number: CA-JNJFOC-20220159148

PATIENT
  Sex: Female
  Weight: 78 kg

DRUGS (1)
  1. REMICADE [Suspect]
     Active Substance: INFLIXIMAB
     Indication: Psoriatic arthropathy
     Dosage: BATCH NUMBER: MAM74014, EXPIRY DATE: 31-DEC-2024.
     Route: 042

REACTIONS (4)
  - Iron deficiency anaemia [Not Recovered/Not Resolved]
  - Haemorrhage [Unknown]
  - Therapeutic response shortened [Unknown]
  - Off label use [Unknown]
